FAERS Safety Report 10983441 (Version 1)
Quarter: 2015Q2

REPORT INFORMATION
  Report Type: Spontaneous
  Country: US (occurrence: None)
  Receive Date: 20150402
  Receipt Date: 20150402
  Transmission Date: 20150821
  Serious: Yes (Other)
  Sender: FDA-Public Use
  Company Number: None

PATIENT
  Age: 69 Year
  Sex: Male
  Weight: 79.38 kg

DRUGS (12)
  1. MULTIVITAMIN [Concomitant]
     Active Substance: VITAMINS
  2. ATORVASTATIN [Concomitant]
     Active Substance: ATORVASTATIN
  3. XARELTO [Concomitant]
     Active Substance: RIVAROXABAN
  4. LISINOPRIL. [Concomitant]
     Active Substance: LISINOPRIL
  5. ASPIRIN. [Concomitant]
     Active Substance: ASPIRIN
  6. AMIODARONE 200MG [Suspect]
     Active Substance: AMIODARONE
     Indication: HEART RATE IRREGULAR
     Dosage: 2 PILLS, ONCE DAILY, TAKEN BY MOUTH
     Route: 048
     Dates: start: 20150201, end: 20150331
  7. DIGOXIN. [Concomitant]
     Active Substance: DIGOXIN
  8. FUROSEMIDE. [Concomitant]
     Active Substance: FUROSEMIDE
  9. DOCUSATE SODIUM. [Concomitant]
     Active Substance: DOCUSATE SODIUM
  10. MIRTAZAPINE. [Concomitant]
     Active Substance: MIRTAZAPINE
  11. AMIDARONE [Concomitant]
     Active Substance: AMIODARONE
  12. FEVIOUS SULFATE [Concomitant]

REACTIONS (3)
  - Eye disorder [None]
  - Delusion [None]
  - Decreased appetite [None]
